FAERS Safety Report 13478227 (Version 1)
Quarter: 2017Q2

REPORT INFORMATION
  Report Type: Report from Study
  Country: US (occurrence: US)
  Receive Date: 20170425
  Receipt Date: 20170425
  Transmission Date: 20170830
  Serious: Yes (Other)
  Sender: FDA-Public Use
  Company Number: US-UCBSA-2017015303

PATIENT
  Sex: Female

DRUGS (1)
  1. LEVETIRACETAM. [Suspect]
     Active Substance: LEVETIRACETAM
     Indication: PRODUCT USED FOR UNKNOWN INDICATION
     Dosage: 500 MG, 3X/DAY (TID)

REACTIONS (14)
  - Unevaluable event [Unknown]
  - Generalised tonic-clonic seizure [Unknown]
  - Depression [Unknown]
  - Psychiatric symptom [Unknown]
  - Dizziness [Unknown]
  - Aura [Unknown]
  - Bipolar disorder [Unknown]
  - Anxiety [Unknown]
  - Intentional product misuse [Unknown]
  - Allergy to arthropod bite [Unknown]
  - Petit mal epilepsy [Unknown]
  - Memory impairment [Unknown]
  - Epilepsy [Unknown]
  - Fatigue [Unknown]
